FAERS Safety Report 8266124 (Version 2)
Quarter: 2013Q2

REPORT INFORMATION
  Report Type: Spontaneous
  Country: US (occurrence: US)
  Receive Date: 20111129
  Receipt Date: 20130527
  Transmission Date: 20140414
  Serious: Yes (Other)
  Sender: FDA-Public Use
  Company Number: US-BRISTOL-MYERS SQUIBB COMPANY-16245243

PATIENT
  Age: 67 Year
  Sex: Male
  Weight: 81.63 kg

DRUGS (9)
  1. ONGLYZA TABS [Suspect]
     Indication: DIABETES MELLITUS
  2. CRESTOR [Concomitant]
  3. LYRICA [Concomitant]
  4. CYMBALTA [Concomitant]
  5. PLAVIX [Concomitant]
     Indication: CORONARY ARTERY OCCLUSION
  6. CLONAZEPAM [Concomitant]
  7. VITAMIN D [Concomitant]
  8. MULTIVITAMIN [Concomitant]
  9. GABAPENTIN [Concomitant]

REACTIONS (6)
  - Vomiting [Not Recovered/Not Resolved]
  - Diarrhoea [Not Recovered/Not Resolved]
  - Dehydration [Unknown]
  - Abdominal distension [Unknown]
  - Eructation [Unknown]
  - Hypoglycaemia [Unknown]
